FAERS Safety Report 5623029-4 (Version None)
Quarter: 2008Q1

REPORT INFORMATION
  Report Type: 
  Country: None (occurrence: None)
  Receive Date: 20080212
  Receipt Date: 20080129
  Transmission Date: 20080703
  Serious: Yes (Hospitalization)
  Sender: FDA-Public Use
  Company Number: GB-AMGEN-US263752

PATIENT
  Age: 45 Year
  Sex: Female
  Weight: 85 kg

DRUGS (9)
  1. ENBREL [Suspect]
     Indication: DRUG USE FOR UNKNOWN INDICATION
     Dates: start: 20080122, end: 20080122
  2. ARCOXIA [Concomitant]
  3. BENDROFLUMETHIAZIDE [Concomitant]
  4. TELFAST [Concomitant]
  5. LOSEC I.V. [Concomitant]
  6. METHOTREXATE [Concomitant]
  7. SERC [Concomitant]
     Dosage: 3 X 160MG PRN
  8. IRBESARTAN [Concomitant]
  9. FOLIC ACID [Concomitant]

REACTIONS (5)
  - DYSPNOEA [None]
  - HYPERSENSITIVITY [None]
  - NAUSEA [None]
  - PARAESTHESIA ORAL [None]
  - SWELLING FACE [None]
